FAERS Safety Report 3575071 (Version 1)
Quarter: 2020Q3

REPORT INFORMATION
  Report Type: Spontaneous
  Country: US (occurrence: None)
  Receive Date: 20001128
  Receipt Date: 20001128
  Transmission Date: 20201105
  Serious: No
  Sender: FDA-Public Use
  Company Number: None

PATIENT

DRUGS (2)
  1. FERROUS SULFATE. [Suspect]
     Active Substance: FERROUS SULFATE
  2. FERROUS GLUCONATE [Suspect]
     Active Substance: FERROUS GLUCONATE

REACTIONS (1)
  - Medication error [None]
